FAERS Safety Report 9805044 (Version 1)
Quarter: 2014Q1

REPORT INFORMATION
  Report Type: Spontaneous
  Country: FR (occurrence: FR)
  Receive Date: 20140109
  Receipt Date: 20140109
  Transmission Date: 20141002
  Serious: Yes (Hospitalization, Other)
  Sender: FDA-Public Use
  Company Number: FR-009507513-1401FRA001232

PATIENT
  Age: 69 Year
  Sex: Female

DRUGS (4)
  1. VICTRELIS [Suspect]
     Indication: HEPATITIS C
     Dosage: 12 DF, QD
     Route: 048
     Dates: start: 201302
  2. PRADAXA [Suspect]
     Indication: ATRIAL FIBRILLATION
     Dosage: 2 DF, QD
     Route: 048
     Dates: end: 20131023
  3. COPEGUS [Suspect]
     Indication: HEPATITIS C
     Dosage: 5 DF, QD
     Route: 058
     Dates: start: 201302
  4. PEGASYS [Suspect]
     Dosage: UNK
     Route: 058
     Dates: start: 201302

REACTIONS (2)
  - Ischaemic stroke [Recovering/Resolving]
  - Drug ineffective [Recovering/Resolving]
